FAERS Safety Report 16526735 (Version 8)
Quarter: 2020Q3

REPORT INFORMATION
  Report Type: Report from Study
  Country: IL (occurrence: IL)
  Receive Date: 20190704
  Receipt Date: 20200324
  Transmission Date: 20201104
  Serious: Yes (Hospitalization, Other)
  Sender: FDA-Public Use
  Company Number: IL-ACTELION-A-CH2019-192218

PATIENT
  Age: 69 Year
  Sex: Male
  Weight: 71 kg

DRUGS (14)
  1. AMIODACORE [Concomitant]
     Active Substance: AMIODARONE
     Dosage: 200 UNK, OD
     Route: 048
     Dates: start: 201810
  2. EUTHYROX [Concomitant]
     Active Substance: LEVOTHYROXINE SODIUM
     Dosage: 50 MG, OD
     Route: 048
     Dates: start: 201811
  3. MACITENTAN [Suspect]
     Active Substance: MACITENTAN
     Indication: PULMONARY VASCULAR DISORDER
     Dosage: 10 MG, OD
     Route: 048
     Dates: start: 20181211, end: 20190107
  4. SPIRONOLACTONE. [Concomitant]
     Active Substance: SPIRONOLACTONE
     Dosage: UNK, PRN
     Route: 048
     Dates: start: 201810
  5. GLUCOPHAGE [Concomitant]
     Active Substance: METFORMIN HYDROCHLORIDE
     Dosage: UNK
     Dates: start: 201503
  6. URSOLIT [Concomitant]
  7. FERRIPEL [Concomitant]
     Dosage: UNK
     Dates: start: 201806
  8. LORIVAN [Concomitant]
     Active Substance: LORAZEPAM
     Dosage: UNK
     Dates: start: 201507
  9. MACITENTAN [Suspect]
     Active Substance: MACITENTAN
     Dosage: 10 MG, OD
     Route: 048
     Dates: start: 20190108, end: 20190211
  10. FUSID [Concomitant]
     Indication: PRODUCT USED FOR UNKNOWN INDICATION
     Dosage: 20 UNK, BID
     Route: 065
     Dates: start: 201901
  11. CARDILOC [Concomitant]
     Active Substance: BISOPROLOL FUMARATE
     Dosage: 125 UNK, OD
     Route: 048
     Dates: start: 200901
  12. ELIQUIS [Concomitant]
     Active Substance: APIXABAN
     Dosage: 2.5 UNK, BID
     Route: 048
     Dates: start: 201802
  13. ZAROXOLYN [Concomitant]
     Active Substance: METOLAZONE
     Indication: PRODUCT USED FOR UNKNOWN INDICATION
     Dosage: UNK UNK, PRN
     Route: 065
     Dates: start: 201905
  14. MACITENTAN [Suspect]
     Active Substance: MACITENTAN
     Indication: CARDIAC FAILURE
     Dosage: 10 MG, OD
     Route: 048
     Dates: start: 20190212, end: 20190618

REACTIONS (25)
  - Asthenia [Recovered/Resolved]
  - Pyrexia [Unknown]
  - Fluid retention [Unknown]
  - Blood bilirubin increased [Recovering/Resolving]
  - Delirium [Recovered/Resolved]
  - Multiple organ dysfunction syndrome [Unknown]
  - Hypotension [Unknown]
  - Prothrombin time shortened [Unknown]
  - Blood alkaline phosphatase increased [Recovered/Resolved]
  - Ammonia increased [Recovered/Resolved]
  - Seizure [Recovered/Resolved]
  - Encephalopathy [Recovered/Resolved]
  - Congestive hepatopathy [Recovered/Resolved]
  - Pericarditis constrictive [Unknown]
  - Renal impairment [Recovered/Resolved]
  - Vomiting [Recovered/Resolved]
  - Sepsis [Unknown]
  - Infection [Unknown]
  - Cardiac failure [Unknown]
  - Ultrasound abdomen abnormal [Unknown]
  - Aspartate aminotransferase increased [Recovering/Resolving]
  - Acute kidney injury [Recovered/Resolved]
  - Hyponatraemia [Recovered/Resolved]
  - Nausea [Recovered/Resolved]
  - International normalised ratio increased [Unknown]

NARRATIVE: CASE EVENT DATE: 20190618
